FAERS Safety Report 11319931 (Version 3)
Quarter: 2015Q3

REPORT INFORMATION
  Report Type: Spontaneous
  Country: IT (occurrence: IT)
  Receive Date: 20150729
  Receipt Date: 20150813
  Transmission Date: 20151125
  Serious: Yes (Hospitalization, Other)
  Sender: FDA-Public Use
  Company Number: IT-PFIZER INC-2015250941

PATIENT
  Age: 59 Year
  Sex: Female

DRUGS (2)
  1. LYRICA [Suspect]
     Active Substance: PREGABALIN
     Dosage: 10 CAPSULES OF 75 MG, 6 CAPSULES OF UNSPECIFIED DOSAGE
  2. QUETIAPINA DOC [Suspect]
     Active Substance: QUETIAPINE
     Dosage: 10 CAPSULES

REACTIONS (2)
  - Drug abuse [Recovered/Resolved]
  - Sopor [Unknown]

NARRATIVE: CASE EVENT DATE: 20150706
